FAERS Safety Report 11643802 (Version 1)
Quarter: 2015Q4

REPORT INFORMATION
  Report Type: Spontaneous
  Country: US (occurrence: None)
  Receive Date: 20151019
  Receipt Date: 20151019
  Transmission Date: 20160304
  Serious: Yes (Other)
  Sender: FDA-Public Use
  Company Number: None

PATIENT
  Age: 64 Year
  Sex: Male

DRUGS (5)
  1. ENOXAPARIN [Suspect]
     Active Substance: ENOXAPARIN
     Indication: PULMONARY EMBOLISM
     Dosage: 8MG/0.8ML ?1X?INJECTION
  2. VITAMINS [Concomitant]
     Active Substance: VITAMINS
  3. TULSI [Concomitant]
  4. TURMARIC [Concomitant]
  5. IRON [Concomitant]
     Active Substance: IRON

REACTIONS (2)
  - Drug ineffective [None]
  - Syringe issue [None]
